FAERS Safety Report 19163018 (Version 1)
Quarter: 2021Q2

REPORT INFORMATION
  Report Type: Spontaneous
  Country: US (occurrence: US)
  Receive Date: 20210421
  Receipt Date: 20210421
  Transmission Date: 20210717
  Serious: No
  Sender: FDA-Public Use
  Company Number: US-SA-2021SA127869

PATIENT
  Age: 35 Year
  Sex: Male

DRUGS (1)
  1. DUPIXENT [Suspect]
     Active Substance: DUPILUMAB
     Indication: DERMATITIS
     Dosage: 300MG
     Route: 058
     Dates: start: 20210222

REACTIONS (2)
  - Product use in unapproved indication [Unknown]
  - Unevaluable event [Unknown]

NARRATIVE: CASE EVENT DATE: 2021
